FAERS Safety Report 20809690 (Version 1)
Quarter: 2022Q2

REPORT INFORMATION
  Report Type: Spontaneous
  Country: NZ (occurrence: NZ)
  Receive Date: 20220510
  Receipt Date: 20220510
  Transmission Date: 20220721
  Serious: Yes (Hospitalization)
  Sender: FDA-Public Use
  Company Number: NZ-ELI_LILLY_AND_COMPANY-NZ202204013031

PATIENT
  Sex: Male

DRUGS (3)
  1. ZYPREXA RELPREVV [Suspect]
     Active Substance: OLANZAPINE PAMOATE
     Indication: Schizophrenia
     Dosage: 300 MG, FORNIGHTLY
     Route: 030
     Dates: start: 202111
  2. ZYPREXA RELPREVV [Suspect]
     Active Substance: OLANZAPINE PAMOATE
     Indication: Schizophrenia
     Dosage: 300 MG, FORNIGHTLY
     Route: 030
     Dates: start: 202111
  3. ZYPREXA RELPREVV [Suspect]
     Active Substance: OLANZAPINE PAMOATE
     Indication: Schizophrenia
     Dosage: 300 MG, FORNIGHTLY
     Route: 030
     Dates: start: 202111

REACTIONS (6)
  - Drooling [Unknown]
  - Psychomotor hyperactivity [Unknown]
  - Fall [Unknown]
  - Restlessness [Unknown]
  - Dysarthria [Unknown]
  - Sedation [Unknown]
